FAERS Safety Report 4352590-5 (Version None)
Quarter: 2004Q2

REPORT INFORMATION
  Report Type: 
  Country: None (occurrence: None)
  Receive Date: 20040503
  Receipt Date: 20040503
  Transmission Date: 20050107
  Serious: Yes (Other)
  Sender: FDA-Public Use
  Company Number: None

PATIENT
  Age: 51 Year
  Sex: Male

DRUGS (4)
  1. DURAGESIC [Suspect]
     Indication: FIBROMYALGIA
     Dosage: 1 EVERY 3 DAYS
     Dates: start: 20040401
  2. NEURONTIN [Concomitant]
  3. PROPRANOLOL [Concomitant]
  4. TRICOR [Concomitant]

REACTIONS (2)
  - DRUG INEFFECTIVE [None]
  - PHARMACEUTICAL PRODUCT COMPLAINT [None]
